FAERS Safety Report 17850088 (Version 3)
Quarter: 2020Q4

REPORT INFORMATION
  Report Type: Spontaneous
  Country: US (occurrence: US)
  Receive Date: 20200602
  Receipt Date: 20201127
  Transmission Date: 20210113
  Serious: Yes (Death, Life-Threatening, Hospitalization, Other)
  Sender: FDA-Public Use
  Company Number: US-BAYER-2020-100390

PATIENT
  Age: 74 Year
  Sex: Female

DRUGS (15)
  1. DILTIAZEM. [Suspect]
     Active Substance: DILTIAZEM
  2. RANITIDINE. [Suspect]
     Active Substance: RANITIDINE
  3. LISINOPRIL. [Suspect]
     Active Substance: LISINOPRIL
  4. PRAVASTATIN. [Suspect]
     Active Substance: PRAVASTATIN
  5. ACETYLSALICYLIC ACID [Suspect]
     Active Substance: ASPIRIN
     Dosage: UNK
     Route: 048
  6. IBUPROFEN. [Suspect]
     Active Substance: IBUPROFEN
  7. IBUPROFEN. [Suspect]
     Active Substance: IBUPROFEN
     Route: 048
  8. PRAVASTATIN. [Suspect]
     Active Substance: PRAVASTATIN
     Route: 048
  9. OMEPRAZOLE. [Suspect]
     Active Substance: OMEPRAZOLE
     Dosage: UNK
  10. ACETYLSALICYLIC ACID [Suspect]
     Active Substance: ASPIRIN
  11. DILTIAZEM. [Suspect]
     Active Substance: DILTIAZEM
     Route: 048
  12. RANITIDINE. [Suspect]
     Active Substance: RANITIDINE
     Route: 048
  13. LISINOPRIL. [Suspect]
     Active Substance: LISINOPRIL
     Route: 048
  14. FLUOXETINE [Suspect]
     Active Substance: FLUOXETINE HYDROCHLORIDE
     Route: 048
  15. FLUOXETINE [Suspect]
     Active Substance: FLUOXETINE HYDROCHLORIDE

REACTIONS (7)
  - Somnolence [Unknown]
  - Intentional overdose [Fatal]
  - Atrioventricular block second degree [Fatal]
  - Vomiting [Unknown]
  - Bezoar [Unknown]
  - Pulseless electrical activity [Fatal]
  - Atrioventricular block first degree [Fatal]
